FAERS Safety Report 24257837 (Version 1)
Quarter: 2024Q3

REPORT INFORMATION
  Report Type: Spontaneous
  Country: US (occurrence: US)
  Receive Date: 20240828
  Receipt Date: 20240828
  Transmission Date: 20241017
  Serious: Yes (Hospitalization, Other)
  Sender: DR REDDYS
  Company Number: US-DRL-USA-LIT/USA/24/0012401

PATIENT
  Age: 26 Year
  Sex: Female

DRUGS (12)
  1. DECITABINE [Suspect]
     Active Substance: DECITABINE
     Indication: Acute myeloid leukaemia
  2. POSACONAZOLE [Suspect]
     Active Substance: POSACONAZOLE
     Indication: Antifungal prophylaxis
  3. LEVOFLOXACIN [Suspect]
     Active Substance: LEVOFLOXACIN
     Indication: Prophylaxis
     Route: 048
  4. ONUREG [Suspect]
     Active Substance: AZACITIDINE
     Indication: Acute myeloid leukaemia
  5. VENETOCLAX [Suspect]
     Active Substance: VENETOCLAX
     Indication: Acute myeloid leukaemia
  6. ACYCLOVIR [Suspect]
     Active Substance: ACYCLOVIR
     Indication: Prophylaxis
     Route: 048
  7. liposomal amphotericin  B [Concomitant]
     Indication: Antifungal prophylaxis
     Dosage: LAMB,  7.5  MG/KG/DAY)
  8. ISAVUCONAZONIUM [Concomitant]
     Active Substance: ISAVUCONAZONIUM
     Indication: Antifungal prophylaxis
     Route: 048
  9. CASPOFUNGIN [Concomitant]
     Active Substance: CASPOFUNGIN
     Indication: Acute myeloid leukaemia
  10. VORICONAZOLE [Concomitant]
     Active Substance: VORICONAZOLE
     Indication: Acute myeloid leukaemia
     Dosage: HIGH DOSE 6 MG/KG EVERY  12 HOURS
     Route: 042
  11. VANCOMYCIN [Concomitant]
     Active Substance: VANCOMYCIN
     Indication: Prophylaxis
     Route: 048
  12. MEROPENEM [Concomitant]
     Active Substance: MEROPENEM
     Indication: Prophylaxis
     Route: 048

REACTIONS (8)
  - Haemorrhoids [Recovered/Resolved]
  - Hypotension [Unknown]
  - Escherichia bacteraemia [Recovered/Resolved]
  - Blood bilirubin increased [Unknown]
  - Fusarium infection [Unknown]
  - Neutropenia [Unknown]
  - Drug ineffective [Unknown]
  - Product use in unapproved indication [Unknown]
